FAERS Safety Report 19472503 (Version 1)
Quarter: 2021Q2

REPORT INFORMATION
  Report Type: Spontaneous
  Country: US (occurrence: US)
  Receive Date: 20210629
  Receipt Date: 20210629
  Transmission Date: 20210717
  Serious: Yes (Death, Other)
  Sender: FDA-Public Use
  Company Number: US-PFIZER INC-2021721648

PATIENT
  Age: 62 Year
  Sex: Male

DRUGS (4)
  1. BEVACIZUMAB. [Suspect]
     Active Substance: BEVACIZUMAB
     Indication: MENINGIOMA
     Dosage: UNK
  2. OCTREOTIDE. [Suspect]
     Active Substance: OCTREOTIDE
     Indication: MENINGIOMA
     Dosage: UNK
  3. EVEROLIMUS. [Suspect]
     Active Substance: EVEROLIMUS
     Indication: MENINGIOMA
     Dosage: UNK
  4. HYDROXYUREA. [Suspect]
     Active Substance: HYDROXYUREA
     Indication: MENINGIOMA
     Dosage: UNK

REACTIONS (1)
  - Drug ineffective [Fatal]
